FAERS Safety Report 9186515 (Version 1)
Quarter: 2013Q1

REPORT INFORMATION
  Report Type: Spontaneous
  Country: ES (occurrence: ES)
  Receive Date: 20130325
  Receipt Date: 20130325
  Transmission Date: 20140127
  Serious: Yes (Life-Threatening, Hospitalization)
  Sender: FDA-Public Use
  Company Number: ES-ROCHE-1194966

PATIENT
  Age: 76 Year
  Sex: Female

DRUGS (3)
  1. HERCEPTIN [Suspect]
     Indication: BREAST CANCER
     Dosage: LOADING DOSE WAS 590 MG
     Route: 042
     Dates: start: 20121108, end: 20121129
  2. DOCETAXEL [Suspect]
     Indication: BREAST CANCER
     Route: 042
     Dates: start: 20121108, end: 20121129
  3. CARBOPLATIN [Suspect]
     Indication: BREAST CANCER
     Route: 042
     Dates: start: 20121108, end: 20121129

REACTIONS (3)
  - Anaemia [Recovered/Resolved]
  - Cardiac failure [Recovered/Resolved with Sequelae]
  - Atrial fibrillation [Recovered/Resolved]
